FAERS Safety Report 20269452 (Version 8)
Quarter: 2022Q3

REPORT INFORMATION
  Report Type: Spontaneous
  Country: PT (occurrence: PT)
  Receive Date: 20220101
  Receipt Date: 20220914
  Transmission Date: 20221027
  Serious: Yes (Disabling, Other)
  Sender: FDA-Public Use
  Company Number: PT-NOVARTISPH-NVSC2021PT299354

PATIENT
  Age: 76 Year
  Sex: Male

DRUGS (4)
  1. AMLODIPINE [Suspect]
     Active Substance: AMLODIPINE BESYLATE
     Indication: Catheterisation cardiac
     Dosage: UNK
     Route: 065
     Dates: start: 201908
  2. PANTOPRAZOLE [Concomitant]
     Active Substance: PANTOPRAZOLE
     Indication: Catheterisation cardiac
     Dosage: UNK
     Route: 065
     Dates: start: 201908
  3. ISOSORBIDE MONONITRATE [Concomitant]
     Active Substance: ISOSORBIDE MONONITRATE
     Indication: Catheterisation cardiac
     Dosage: UNK
     Route: 065
     Dates: start: 201908
  4. TICAGRELOR [Concomitant]
     Active Substance: TICAGRELOR
     Indication: Catheterisation cardiac
     Dosage: UNK
     Route: 065
     Dates: start: 201908

REACTIONS (1)
  - Subacute cutaneous lupus erythematosus [Recovering/Resolving]

NARRATIVE: CASE EVENT DATE: 20191025
